FAERS Safety Report 23550422 (Version 1)
Quarter: 2024Q1

REPORT INFORMATION
  Report Type: Report from Study
  Country: CR (occurrence: CR)
  Receive Date: 20240221
  Receipt Date: 20240221
  Transmission Date: 20240409
  Serious: Yes (Other)
  Sender: FDA-Public Use
  Company Number: CR-MYLANLABS-2024M1014913

PATIENT
  Sex: Male
  Weight: 93 kg

DRUGS (1)
  1. LIPITOR [Suspect]
     Active Substance: ATORVASTATIN CALCIUM
     Indication: Carotid artery occlusion
     Dosage: 80 MILLIGRAM, QD
     Route: 048

REACTIONS (5)
  - Syncope [Unknown]
  - Myocardial infarction [Unknown]
  - Arterial catheterisation [Unknown]
  - Pain [Unknown]
  - Hypoaesthesia [Unknown]
